APPROVED DRUG PRODUCT: TAVABOROLE
Active Ingredient: TAVABOROLE
Strength: 5%
Dosage Form/Route: SOLUTION;TOPICAL
Application: A211297 | Product #001 | TE Code: AB
Applicant: ENCUBE ETHICALS PRIVATE LTD
Approved: Oct 13, 2020 | RLD: No | RS: Yes | Type: RX